FAERS Safety Report 25369585 (Version 1)
Quarter: 2025Q2

REPORT INFORMATION
  Report Type: Spontaneous
  Country: US (occurrence: None)
  Receive Date: 20250528
  Receipt Date: 20250528
  Transmission Date: 20250717
  Serious: No
  Sender: FDA-CTU
  Company Number: None

PATIENT
  Age: 32 Year
  Sex: Female
  Weight: 69.75 kg

DRUGS (2)
  1. QELBREE [Suspect]
     Active Substance: VILOXAZINE HYDROCHLORIDE
     Indication: Attention deficit hyperactivity disorder
     Route: 048
     Dates: start: 20250511, end: 20250525
  2. SERTRALINE [Concomitant]
     Active Substance: SERTRALINE HYDROCHLORIDE

REACTIONS (11)
  - Fatigue [None]
  - Somnolence [None]
  - Insomnia [None]
  - Withdrawal syndrome [None]
  - Headache [None]
  - Nausea [None]
  - Visual impairment [None]
  - Initial insomnia [None]
  - Abnormal dreams [None]
  - Loss of personal independence in daily activities [None]
  - Migraine [None]

NARRATIVE: CASE EVENT DATE: 20250526
